FAERS Safety Report 5067352-3 (Version None)
Quarter: 2006Q3

REPORT INFORMATION
  Report Type: 
  Country: None (occurrence: None)
  Receive Date: 20060714
  Receipt Date: 20060612
  Transmission Date: 20061208
  Serious: No
  Sender: FDA-Public Use
  Company Number: 2006SP002384

PATIENT
  Age: 64 Year
  Sex: Female
  Weight: 63.5036 kg

DRUGS (8)
  1. LUNESTA [Suspect]
     Indication: INSOMNIA
     Dosage: SEE IMAGE
     Route: 048
     Dates: start: 20060109, end: 20060112
  2. LUNESTA [Suspect]
     Indication: INSOMNIA
     Dosage: SEE IMAGE
     Route: 048
     Dates: start: 20060113, end: 20060516
  3. LUNESTA [Suspect]
     Indication: INSOMNIA
     Dosage: SEE IMAGE
     Route: 048
     Dates: start: 20060517
  4. LEXAPRO [Concomitant]
  5. SYNTHROID [Concomitant]
  6. ALLEGRA-D 12 HOUR [Concomitant]
  7. FOSAMAX [Concomitant]
  8. ASPIRIN [Concomitant]

REACTIONS (1)
  - DYSARTHRIA [None]
